FAERS Safety Report 5803094-1 (Version None)
Quarter: 2008Q2

REPORT INFORMATION
  Report Type: 
  Country: None (occurrence: None)
  Receive Date: 20080626
  Receipt Date: 20070620
  Transmission Date: 20081010
  Serious: Yes (Life-Threatening)
  Sender: FDA-Public Use
  Company Number: VISP-PR-0706S-0279

PATIENT
  Age: 86 Year
  Sex: Female

DRUGS (1)
  1. VISIPAQUE [Suspect]
     Indication: CHEST PAIN
     Dosage: 30 ML, SINGLE DOSE, I.V.
     Route: 042
     Dates: start: 20070524, end: 20070524

REACTIONS (1)
  - ANAPHYLACTOID SHOCK [None]
